FAERS Safety Report 22635073 (Version 1)
Quarter: 2023Q2

REPORT INFORMATION
  Report Type: Spontaneous
  Country: SE (occurrence: SE)
  Receive Date: 20230623
  Receipt Date: 20230623
  Transmission Date: 20230722
  Serious: Yes (Life-Threatening)
  Sender: FDA-Public Use
  Company Number: None

PATIENT
  Age: 83 Year
  Sex: Female

DRUGS (5)
  1. ATORVASTATIN [Suspect]
     Active Substance: ATORVASTATIN
     Indication: Lipids increased
     Dosage: FOR ACTIVE INGREDIENT ATORVASTATIN CALCIUM TRIHYDRATE THE STRENGTH IS 43.4 MILLIGRAMS, FOR ACTIVE IN
     Route: 065
     Dates: start: 20230220, end: 20230330
  2. LOSARTAN [Concomitant]
     Active Substance: LOSARTAN
     Indication: Product used for unknown indication
     Dosage: FOR ACTIVE INGREDIENT LOSARTAN POTASSIUM THE STRENGTH IS 50 MILLIGRAMS, FOR ACTIVE INGREDIENT LOSART
     Route: 065
     Dates: start: 20230117
  3. KALIUMKLORID [Concomitant]
     Indication: Product used for unknown indication
     Dates: start: 20230323
  4. ASPIRIN [Concomitant]
     Active Substance: ASPIRIN
     Indication: Product used for unknown indication
     Route: 065
     Dates: start: 20230220
  5. CITALOPRAM [Concomitant]
     Active Substance: CITALOPRAM HYDROBROMIDE
     Indication: Product used for unknown indication
     Dosage: FOR ACTIVE INGREDIENT CITALOPRAM THE STRENGTH IS 10 MILLIGRAMS, FOR ACTIVE INGREDIENT CITALOPRAM HYD
     Route: 065
     Dates: start: 20230223, end: 20230330

REACTIONS (4)
  - Weight decreased [Recovering/Resolving]
  - Decreased appetite [Recovering/Resolving]
  - Fatigue [Recovering/Resolving]
  - Hepatic failure [Recovering/Resolving]

NARRATIVE: CASE EVENT DATE: 20230321
